FAERS Safety Report 6302097-0 (Version None)
Quarter: 2009Q3

REPORT INFORMATION
  Report Type: 
  Country: None (occurrence: None)
  Receive Date: 20090807
  Receipt Date: 20090727
  Transmission Date: 20100115
  Serious: Yes (Other)
  Sender: FDA-Public Use
  Company Number: FR-GENENTECH-287917

PATIENT
  Age: 76 Year
  Sex: Female

DRUGS (1)
  1. AVASTIN [Suspect]
     Indication: DRUG USE FOR UNKNOWN INDICATION
     Dosage: UNK
     Route: 065
     Dates: start: 20090727

REACTIONS (3)
  - ERYTHEMA [None]
  - HYPERSENSITIVITY [None]
  - OXYGEN SATURATION DECREASED [None]
